FAERS Safety Report 25759100 (Version 2)
Quarter: 2025Q3

REPORT INFORMATION
  Report Type: Spontaneous
  Country: EU (occurrence: EU)
  Receive Date: 20250904
  Receipt Date: 20250925
  Transmission Date: 20251020
  Serious: Yes (Other)
  Sender: ORGANON
  Company Number: EU-ORGANON-O2505FRA003283

PATIENT
  Age: 30 Year
  Sex: Female

DRUGS (1)
  1. NEXPLANON [Suspect]
     Active Substance: ETONOGESTREL
     Route: 059
     Dates: start: 20220506, end: 20250516

REACTIONS (6)
  - Vaginal haemorrhage [Unknown]
  - Device breakage [Recovered/Resolved]
  - Device implantation error [Recovered/Resolved]
  - Complication of device removal [Recovered/Resolved]
  - Patient-device incompatibility [Unknown]
  - Incorrect product administration duration [Unknown]

NARRATIVE: CASE EVENT DATE: 20220506
